FAERS Safety Report 11864551 (Version 1)
Quarter: 2015Q4

REPORT INFORMATION
  Report Type: Spontaneous
  Country: US (occurrence: US)
  Receive Date: 20151223
  Receipt Date: 20151223
  Transmission Date: 20160305
  Serious: No
  Sender: FDA-Public Use
  Company Number: US-RISING PHARMACEUTICALS, INC.-2014PAC00080

PATIENT
  Sex: Male
  Weight: 86.17 kg

DRUGS (6)
  1. CROMOLYN SODIUM ORAL SOLUTION [Suspect]
     Active Substance: CROMOLYN SODIUM
     Indication: MAST CELL ACTIVATION SYNDROME
     Dosage: UNK UNK, 4X/DAY
     Route: 048
     Dates: start: 201312, end: 2014
  2. ZYRTEC [Concomitant]
     Active Substance: CETIRIZINE HYDROCHLORIDE
     Dosage: 30 MG, 1X/DAY
  3. UNSPECIFIED MEDICATIONS [Concomitant]
     Active Substance: UNSPECIFIED INGREDIENT
  4. SINGULAIR [Concomitant]
     Active Substance: MONTELUKAST SODIUM
     Dosage: 10 MG, 1X/DAY
  5. CROMOLYN SODIUM ORAL SOLUTION [Suspect]
     Active Substance: CROMOLYN SODIUM
     Dosage: UNK
     Route: 048
     Dates: start: 2014
  6. ZANTAC [Concomitant]
     Active Substance: RANITIDINE HYDROCHLORIDE
     Dosage: 300 MG, 1X/DAY

REACTIONS (2)
  - Drug ineffective for unapproved indication [Not Recovered/Not Resolved]
  - Flushing [Not Recovered/Not Resolved]
